FAERS Safety Report 6914405-8 (Version None)
Quarter: 2010Q3

REPORT INFORMATION
  Report Type: 
  Country: None (occurrence: None)
  Receive Date: 20100805
  Receipt Date: 20100805
  Transmission Date: 20110219
  Serious: Yes (Other)
  Sender: FDA-Public Use
  Company Number: None

PATIENT
  Sex: Female
  Weight: 61.2356 kg

DRUGS (1)
  1. ACTONEL [Suspect]
     Indication: BONE DENSITY DECREASED
     Dosage: ONCE A MONTH MONTHLY PO
     Route: 048
     Dates: start: 20100605, end: 20100605

REACTIONS (3)
  - ARTHRITIS [None]
  - MYALGIA [None]
  - OEDEMA PERIPHERAL [None]
